FAERS Safety Report 8088437-3 (Version None)
Quarter: 2012Q1

REPORT INFORMATION
  Report Type: 
  Country: None (occurrence: None)
  Receive Date: 20120128
  Receipt Date: 20110417
  Transmission Date: 20120608
  Serious: No
  Sender: FDA-Public Use
  Company Number: US-ABBOTT-11P-163-0719763-00

PATIENT
  Age: 17 Year
  Sex: Male

DRUGS (4)
  1. HUMIRA [Suspect]
     Indication: PSORIASIS
     Dosage: 1ST DOSE - ONE MONTH AGO
     Dates: start: 20110301, end: 20110301
  2. UNKNOWN MEDICATIONS [Concomitant]
     Indication: PRODUCT USED FOR UNKNOWN INDICATION
  3. HUMIRA [Suspect]
     Dosage: 2ND DOSE ON DAY 8 OF TREATMENT
     Dates: start: 20110301, end: 20110301
  4. HUMIRA [Suspect]
     Dosage: 3RD DOSE ON DAY 22 OF TREATMENT
     Dates: start: 20110401

REACTIONS (2)
  - OROPHARYNGEAL PAIN [None]
  - DEVICE FAILURE [None]
